FAERS Safety Report 6507666-0 (Version None)
Quarter: 2009Q4

REPORT INFORMATION
  Report Type: 
  Country: None (occurrence: None)
  Receive Date: 20091221
  Receipt Date: 20091210
  Transmission Date: 20100525
  Serious: Yes (Other)
  Sender: FDA-Public Use
  Company Number: DE-JNJFOC-20091203810

PATIENT
  Age: 30 Year
  Sex: Female

DRUGS (5)
  1. INFLIXIMAB [Suspect]
     Route: 042
  2. INFLIXIMAB [Suspect]
     Indication: AUTOIMMUNE HEPATITIS
     Route: 042
  3. VITAMIN [Suspect]
     Indication: DRUG USE FOR UNKNOWN INDICATION
     Route: 050
  4. PREDNISOLONE [Concomitant]
  5. AZATHIOPRINE [Concomitant]

REACTIONS (4)
  - DRUG EXPOSURE BEFORE PREGNANCY [None]
  - HERPES ZOSTER OPHTHALMIC [None]
  - PSOAS ABSCESS [None]
  - THERAPEUTIC RESPONSE UNEXPECTED [None]
